FAERS Safety Report 7395491-0 (Version None)
Quarter: 2011Q1

REPORT INFORMATION
  Report Type: 
  Country: None (occurrence: None)
  Receive Date: 20110325
  Receipt Date: 20110316
  Transmission Date: 20110831
  Serious: Yes (Hospitalization)
  Sender: FDA-Public Use
  Company Number: LEO-2011-00254

PATIENT
  Age: 27 Year
  Sex: Female

DRUGS (1)
  1. INNOHEP [Suspect]
     Indication: THROMBOSIS PROPHYLAXIS
     Dosage: 14000 IU (14000 IU, 1 IN 1 D), SUBCUTANEOUS
     Route: 058
     Dates: start: 20110101

REACTIONS (2)
  - DRUG EXPOSURE DURING PREGNANCY [None]
  - DEEP VEIN THROMBOSIS [None]
